FAERS Safety Report 6207786-4 (Version None)
Quarter: 2009Q2

REPORT INFORMATION
  Report Type: 
  Country: None (occurrence: None)
  Receive Date: 20090522
  Receipt Date: 20090520
  Transmission Date: 20091009
  Serious: Yes (Death)
  Sender: FDA-Public Use
  Company Number: 2009SP010760

PATIENT
  Age: 78 Year
  Sex: Male

DRUGS (2)
  1. TEMODAL [Suspect]
     Indication: GLIOBLASTOMA
     Dosage: 75 MG/M2; QD; PO
     Route: 048
     Dates: start: 20090420, end: 20090501
  2. BAKTAR [Concomitant]

REACTIONS (3)
  - ANOREXIA [None]
  - OROPHARYNGEAL PAIN [None]
  - PNEUMONIA FUNGAL [None]
